FAERS Safety Report 7561864-6 (Version None)
Quarter: 2011Q2

REPORT INFORMATION
  Report Type: 
  Country: None (occurrence: None)
  Receive Date: 20110621
  Receipt Date: 20110606
  Transmission Date: 20111010
  Serious: Yes (Other)
  Sender: FDA-Public Use
  Company Number: PHHY2011CA39367

PATIENT
  Sex: Female

DRUGS (8)
  1. ZOLEDRONIC ACID [Suspect]
     Indication: OSTEOPOROSIS
     Dosage: 5 MG
     Route: 042
     Dates: start: 20100520
  2. SYNTHROID [Concomitant]
     Dosage: 0.075 MG, QD
  3. ZOLEDRONIC ACID [Suspect]
     Dosage: 5 MG, UNK
     Route: 042
  4. ZOLEDRONIC ACID [Suspect]
     Dosage: 5 MG, UNK
     Route: 042
  5. ATENOLOL [Concomitant]
     Dosage: 100 MG, QD
  6. TAMOFEN [Concomitant]
     Dosage: 200 MG, QHS
  7. CALCIUM WITH VITAMIN D [Concomitant]
     Dosage: UNK
  8. ACETYL SALICYLIC ACID COMPOUND TAB [Concomitant]
     Dosage: 80 MG, QD

REACTIONS (3)
  - SPINAL FRACTURE [None]
  - GAIT DISTURBANCE [None]
  - FALL [None]
